FAERS Safety Report 6092052-0 (Version None)
Quarter: 2009Q1

REPORT INFORMATION
  Report Type: 
  Country: None (occurrence: None)
  Receive Date: 20090225
  Receipt Date: 20090218
  Transmission Date: 20090719
  Serious: Yes (Hospitalization, Other)
  Sender: FDA-Public Use
  Company Number: US-BIOGENIDEC-2007BI018346

PATIENT
  Age: 57 Year
  Sex: Female
  Weight: 68 kg

DRUGS (7)
  1. TYSABRI [Suspect]
     Indication: MULTIPLE SCLEROSIS
     Route: 042
     Dates: start: 20070730, end: 20070827
  2. COREG [Concomitant]
     Indication: HYPERTENSION
  3. STEROIDAL EYE DROPS [Concomitant]
     Indication: IRITIS
  4. IRON [Concomitant]
     Indication: DRUG USE FOR UNKNOWN INDICATION
  5. ASPIRIN [Concomitant]
     Indication: DRUG USE FOR UNKNOWN INDICATION
  6. LIPITOR [Concomitant]
     Indication: DRUG USE FOR UNKNOWN INDICATION
  7. CAPTOPRIL [Concomitant]
     Indication: DRUG USE FOR UNKNOWN INDICATION

REACTIONS (7)
  - ANAPHYLACTIC REACTION [None]
  - CARDIAC DISORDER [None]
  - CARDIAC FAILURE CONGESTIVE [None]
  - CATARACT OPERATION [None]
  - CONVULSION [None]
  - GENITAL DISORDER FEMALE [None]
  - HYPERSENSITIVITY [None]
